FAERS Safety Report 4521961-6 (Version None)
Quarter: 2004Q4

REPORT INFORMATION
  Report Type: 
  Country: None (occurrence: None)
  Receive Date: 20041206
  Receipt Date: 20041123
  Transmission Date: 20050328
  Serious: Yes (Hospitalization, Other)
  Sender: FDA-Public Use
  Company Number: 2004082916

PATIENT
  Age: 44 Year
  Sex: Female

DRUGS (2)
  1. NEURONTIN [Suspect]
     Indication: NEUROPATHIC PAIN
     Dosage: 2400 MG (1200 MG, 2 IN 1 D), ORAL
     Route: 048
     Dates: start: 19990101
  2. MORPHINE SULFATE [Concomitant]

REACTIONS (4)
  - BRACHIAL PLEXUS LESION [None]
  - CERVICAL RIB EXCISION [None]
  - MONOPLEGIA [None]
  - PAIN IN EXTREMITY [None]
